FAERS Safety Report 8112340-3 (Version None)
Quarter: 2012Q1

REPORT INFORMATION
  Report Type: 
  Country: None (occurrence: None)
  Receive Date: 20120203
  Receipt Date: 20111228
  Transmission Date: 20120608
  Serious: Yes (Other)
  Sender: FDA-Public Use
  Company Number: US-ASTRAZENECA-2011SE45674

PATIENT

DRUGS (2)
  1. VANDETANIB [Suspect]
     Indication: MALIGNANT GLIOMA
     Dosage: 200 MG DAILY
     Route: 048
  2. WARFARIN SODIUM [Concomitant]
     Indication: DEEP VEIN THROMBOSIS

REACTIONS (1)
  - ELECTROCARDIOGRAM QT PROLONGED [None]
